FAERS Safety Report 12705720 (Version 1)
Quarter: 2016Q3

REPORT INFORMATION
  Report Type: Spontaneous
  Country: VN (occurrence: VN)
  Receive Date: 20160901
  Receipt Date: 20160901
  Transmission Date: 20161109
  Serious: Yes (Life-Threatening, Other)
  Sender: FDA-Public Use
  Company Number: VN-ROCHE-1823656

PATIENT
  Age: 56 Year
  Sex: Male

DRUGS (10)
  1. DOXORUBICIN HYDROCHLORIDE. [Suspect]
     Active Substance: DOXORUBICIN HYDROCHLORIDE
     Indication: DIFFUSE LARGE B-CELL LYMPHOMA
     Dosage: IN R-CHOP REGIMEN, 5 CYCLES
     Route: 065
     Dates: start: 201506, end: 201510
  2. PREDNISOLONE. [Suspect]
     Active Substance: PREDNISOLONE
     Indication: DIFFUSE LARGE B-CELL LYMPHOMA
     Dosage: IN R-CHOP REGIMEN, 5 CYCLES
     Route: 065
     Dates: start: 201506, end: 201510
  3. VINCRISTINE [Suspect]
     Active Substance: VINCRISTINE
     Dosage: IN R-CVP REGIMEN
     Route: 065
     Dates: start: 201602
  4. PREDNISOLONE. [Suspect]
     Active Substance: PREDNISOLONE
     Dosage: IN R-CVP REGIMEN
     Route: 065
     Dates: start: 201602
  5. CYCLOPHOSPHAMIDE. [Suspect]
     Active Substance: CYCLOPHOSPHAMIDE
     Indication: DIFFUSE LARGE B-CELL LYMPHOMA
     Dosage: IN R-CHOP REGIMEN, 5 CYCLES
     Route: 065
     Dates: start: 201506, end: 201510
  6. MABTHERA [Suspect]
     Active Substance: RITUXIMAB
     Indication: DIFFUSE LARGE B-CELL LYMPHOMA
     Dosage: IN R-CHOP REGIMEN, 5 CYCLES
     Route: 065
     Dates: start: 201506, end: 201510
  7. CYCLOPHOSPHAMIDE. [Suspect]
     Active Substance: CYCLOPHOSPHAMIDE
     Dosage: IN R-CVP REGIMEN
     Route: 065
     Dates: start: 201602
  8. ENTECAVIR. [Concomitant]
     Active Substance: ENTECAVIR
     Dosage: 1 TAB DAILY
     Route: 048
     Dates: start: 201506
  9. VINCRISTINE [Suspect]
     Active Substance: VINCRISTINE
     Indication: DIFFUSE LARGE B-CELL LYMPHOMA
     Dosage: IN R-CHOP REGIMEN, 5 CYCLES
     Route: 065
     Dates: start: 201506, end: 201510
  10. MABTHERA [Suspect]
     Active Substance: RITUXIMAB
     Dosage: IN R-CVP REGIMEN
     Route: 065
     Dates: start: 201602

REACTIONS (4)
  - Thrombocytopenia [Not Recovered/Not Resolved]
  - Disease progression [Unknown]
  - Cerebrovascular accident [Recovered/Resolved]
  - Off label use [Unknown]

NARRATIVE: CASE EVENT DATE: 201510
